FAERS Safety Report 19453936 (Version 2)
Quarter: 2021Q4

REPORT INFORMATION
  Report Type: Report from Study
  Country: IN (occurrence: IN)
  Receive Date: 20210623
  Receipt Date: 20211118
  Transmission Date: 20220303
  Serious: Yes (Other)
  Sender: FDA-Public Use
  Company Number: IN-ASTELLAS-2021US022582

PATIENT
  Age: 73 Year
  Sex: Male

DRUGS (11)
  1. ISAVUCONAZOLE [Suspect]
     Active Substance: ISAVUCONAZOLE
     Indication: Product used for unknown indication
     Dosage: 600 MG (200 MG,3 IN 1 D)
     Route: 048
     Dates: start: 20210423
  2. ISAVUCONAZOLE [Suspect]
     Active Substance: ISAVUCONAZOLE
     Dosage: 200 MG (200 MG,1 IN 1 D)
     Route: 048
  3. ISAVUCONAZOLE [Suspect]
     Active Substance: ISAVUCONAZOLE
     Dosage: 400 MG (200 MG,2 IN 1 D)
     Route: 048
     Dates: start: 20210426
  4. LASIX [Concomitant]
     Active Substance: FUROSEMIDE
     Indication: Product used for unknown indication
     Route: 065
  5. TARGOCID [Concomitant]
     Active Substance: TEICOPLANIN
     Indication: Product used for unknown indication
     Route: 065
  6. XYLISTIN [Concomitant]
     Indication: Product used for unknown indication
     Dosage: 3 MIU, UNKNOWN FREQ.
     Route: 065
  7. CORDARONE [Concomitant]
     Active Substance: AMIODARONE HYDROCHLORIDE
     Indication: Product used for unknown indication
     Route: 065
  8. NEOVEC [Concomitant]
     Indication: Product used for unknown indication
     Dosage: 4MG/2ML , UNKNOWN FREQ.
     Route: 065
  9. ANIDULAFUNGIN [Concomitant]
     Active Substance: ANIDULAFUNGIN
     Indication: Product used for unknown indication
     Route: 065
  10. Kesol [Concomitant]
     Indication: Product used for unknown indication
     Route: 065
  11. M NEM [Concomitant]
     Indication: Product used for unknown indication
     Route: 065

REACTIONS (3)
  - Mucormycosis [Unknown]
  - Off label use [Unknown]
  - Inappropriate schedule of product administration [Unknown]

NARRATIVE: CASE EVENT DATE: 20210426
